FAERS Safety Report 5284338-4 (Version None)
Quarter: 2007Q2

REPORT INFORMATION
  Report Type: 
  Country: None (occurrence: None)
  Receive Date: 20070403
  Receipt Date: 20070323
  Transmission Date: 20071010
  Serious: Yes (Death)
  Sender: FDA-Public Use
  Company Number: ZA-ELI_LILLY_AND_COMPANY-ZA200703005804

PATIENT
  Age: 63 Year
  Sex: Female

DRUGS (6)
  1. ALIMTA [Suspect]
     Indication: NON-SMALL CELL LUNG CANCER
     Dosage: D1 OF 21 DAY CYCLE
     Route: 042
     Dates: start: 20060929, end: 20060929
  2. FOLIC ACID [Concomitant]
     Indication: PROPHYLAXIS
     Route: 048
  3. VITAMIN B-12 [Concomitant]
     Indication: PROPHYLAXIS
     Route: 030
  4. DEXAMETHASONE [Concomitant]
     Indication: PROPHYLAXIS
  5. DURAGESIC-100 [Concomitant]
     Indication: PAIN
     Route: 062
  6. VENTOLIN                                /SCH/ [Concomitant]
     Indication: ASTHMA
     Route: 055

REACTIONS (2)
  - DEATH [None]
  - MALIGNANT NEOPLASM PROGRESSION [None]
